FAERS Safety Report 15010459 (Version 2)
Quarter: 2018Q2

REPORT INFORMATION
  Report Type: Report from Study
  Country: CA (occurrence: CA)
  Receive Date: 20180614
  Receipt Date: 20180615
  Transmission Date: 20180711
  Serious: Yes (Other)
  Sender: FDA-Public Use
  Company Number: CA-BRISTOL-MYERS SQUIBB COMPANY-BMS-2017-119748

PATIENT
  Age: 64 Year
  Sex: Female

DRUGS (1)
  1. ABATACEPT [Suspect]
     Active Substance: ABATACEPT
     Indication: RHEUMATOID ARTHRITIS
     Dosage: UNK, QMO
     Route: 042
     Dates: start: 20171130

REACTIONS (18)
  - Wound [Unknown]
  - Peripheral swelling [Unknown]
  - Skin haemorrhage [Unknown]
  - Malaise [Unknown]
  - Pyrexia [Unknown]
  - Eye irritation [Unknown]
  - Rheumatoid arthritis [Unknown]
  - Productive cough [Unknown]
  - Skin lesion [Unknown]
  - Fall [Not Recovered/Not Resolved]
  - Scratch [Not Recovered/Not Resolved]
  - Accident [Unknown]
  - Drug dose omission [Unknown]
  - Emphysema [Unknown]
  - Cough [Unknown]
  - Lower respiratory tract infection [Recovering/Resolving]
  - Oropharyngeal pain [Unknown]
  - Pyrexia [Unknown]

NARRATIVE: CASE EVENT DATE: 20171226
